FAERS Safety Report 6714251-4 (Version None)
Quarter: 2010Q2

REPORT INFORMATION
  Report Type: 
  Country: None (occurrence: None)
  Receive Date: 20100506
  Receipt Date: 20090519
  Transmission Date: 20101027
  Serious: No
  Sender: FDA-Public Use
  Company Number: US-BAUSCH-2009BL002475

PATIENT
  Age: 54 Year
  Sex: Male

DRUGS (6)
  1. LOTEMAX [Suspect]
     Indication: EYE INFLAMMATION
     Route: 047
     Dates: start: 20090428, end: 20090512
  2. LOTEMAX [Suspect]
     Indication: OCULAR HYPERAEMIA
     Route: 047
     Dates: start: 20090428, end: 20090512
  3. AZASITE (AZRITHROMYCIN OPHTHALMIC SOLUTION) 1% [Suspect]
     Indication: EYE DISCHARGE
     Route: 047
     Dates: start: 20090428, end: 20090512
  4. CENTRUM [Concomitant]
  5. ALLOPURINOL [Concomitant]
     Indication: GOUT
  6. LORATADINE [Concomitant]
     Indication: SEASONAL ALLERGY

REACTIONS (3)
  - PHOTOSENSITIVITY REACTION [None]
  - VISION BLURRED [None]
  - VISUAL ACUITY REDUCED [None]
